FAERS Safety Report 5276966-7 (Version None)
Quarter: 2007Q1

REPORT INFORMATION
  Report Type: 
  Country: None (occurrence: None)
  Receive Date: 20070327
  Receipt Date: 20070314
  Transmission Date: 20070707
  Serious: Yes (Other)
  Sender: FDA-Public Use
  Company Number: US-AMGEN-STX215038

PATIENT
  Sex: Male

DRUGS (2)
  1. ENBREL [Suspect]
     Indication: PSORIATIC ARTHROPATHY
     Route: 058
     Dates: start: 20040217
  2. ENBREL [Suspect]
     Indication: PSORIASIS

REACTIONS (2)
  - HEPATIC ENZYME ABNORMAL [None]
  - PLATELET COUNT DECREASED [None]
